FAERS Safety Report 5619346-4 (Version None)
Quarter: 2008Q1

REPORT INFORMATION
  Report Type: 
  Country: None (occurrence: None)
  Receive Date: 20080114
  Receipt Date: 20070307
  Transmission Date: 20080703
  Serious: Yes (Other)
  Sender: FDA-Public Use
  Company Number: A03200701882

PATIENT
  Age: 74 Year
  Sex: Female

DRUGS (6)
  1. PLAVIX [Suspect]
     Indication: CORONARY ARTERIAL STENT INSERTION
     Dosage: 75 MG QD - ORAL
     Route: 048
     Dates: start: 20061113
  2. SIMVASTATIN [Suspect]
  3. LISINOPRIL [Suspect]
  4. METOPROLOL TARTRATE [Suspect]
  5. LEVOTHYROXINE SODIUM [Concomitant]
  6. ALPRAZOLAM [Concomitant]

REACTIONS (8)
  - ABDOMINAL PAIN UPPER [None]
  - ASTHENIA [None]
  - DIZZINESS [None]
  - EPISTAXIS [None]
  - FATIGUE [None]
  - HAEMORRHAGIC DIATHESIS [None]
  - NAUSEA [None]
  - SYNCOPE [None]
